FAERS Safety Report 5274394-1 (Version None)
Quarter: 2007Q1

REPORT INFORMATION
  Report Type: 
  Country: None (occurrence: None)
  Receive Date: 20070323
  Receipt Date: 20070313
  Transmission Date: 20070707
  Serious: Yes (Death, Hospitalization, Other)
  Sender: FDA-Public Use
  Company Number: JP-PFIZER INC-2007010401

PATIENT
  Sex: Female
  Weight: 40 kg

DRUGS (12)
  1. LIPITOR [Suspect]
     Indication: HYPERCHOLESTEROLAEMIA
     Dosage: DAILY DOSE:5MG
     Route: 048
     Dates: start: 20060922, end: 20070115
  2. SELBEX [Suspect]
     Indication: GASTRITIS
     Dosage: DAILY DOSE:150MG
     Route: 048
     Dates: start: 20070107, end: 20070115
  3. TIMEPIDIUM BROMIDE [Suspect]
     Indication: GASTRIC DISORDER
     Dosage: DAILY DOSE:90MG
     Route: 048
     Dates: start: 20040324, end: 20070115
  4. TIMEPIDIUM BROMIDE [Suspect]
     Indication: GASTRITIS
  5. MEQUITAZINE [Suspect]
     Indication: PRURITUS
     Dosage: DAILY DOSE:6MG
     Route: 048
  6. MEQUITAZINE [Suspect]
  7. LOXOPROFEN SODIUM [Suspect]
     Indication: BACK PAIN
     Dosage: DAILY DOSE:180MG
     Route: 048
     Dates: start: 20020621, end: 20070115
  8. ZYRTEC [Suspect]
     Indication: PRURITUS
     Dosage: DAILY DOSE:5MG
     Route: 048
     Dates: start: 19991112, end: 20070115
  9. MAGNESIUM OXIDE [Concomitant]
     Route: 048
     Dates: start: 20000107, end: 20070115
  10. SENNOSIDES [Concomitant]
     Route: 048
     Dates: start: 20020306, end: 20070115
  11. CHONDNAL [Concomitant]
     Route: 042
     Dates: start: 20000107, end: 20070113
  12. NEUROTROPIN [Concomitant]
     Route: 042
     Dates: start: 20000107, end: 20070113

REACTIONS (4)
  - COMA HEPATIC [None]
  - HEPATIC CYST [None]
  - HEPATIC FAILURE [None]
  - HEPATITIS FULMINANT [None]
